FAERS Safety Report 6139585-6 (Version None)
Quarter: 2009Q2

REPORT INFORMATION
  Report Type: 
  Country: None (occurrence: None)
  Receive Date: 20090401
  Receipt Date: 20090318
  Transmission Date: 20091009
  Serious: Yes (Hospitalization, Other)
  Sender: FDA-Public Use
  Company Number: US-AMGEN-STX339094

PATIENT
  Sex: Male

DRUGS (2)
  1. SENSIPAR [Suspect]
     Indication: HYPERPARATHYROIDISM SECONDARY
     Dates: start: 19970101
  2. RENAGEL [Concomitant]

REACTIONS (3)
  - BLOOD PARATHYROID HORMONE INCREASED [None]
  - HEART RATE IRREGULAR [None]
  - PARATHYROIDECTOMY [None]
